FAERS Safety Report 5951287-5 (Version None)
Quarter: 2008Q4

REPORT INFORMATION
  Report Type: 
  Country: None (occurrence: None)
  Receive Date: 20081022
  Receipt Date: 20080716
  Transmission Date: 20090506
  Serious: No
  Sender: FDA-Public Use
  Company Number: ALL1-2008-02034

PATIENT
  Age: 13 Year
  Sex: Male
  Weight: 127 kg

DRUGS (3)
  1. VYVANSE [Suspect]
     Indication: ATTENTION DEFICIT/HYPERACTIVITY DISORDER
     Dosage: 70 MG, 1X/DAY: QD, ORAL
     Route: 048
     Dates: start: 20080714, end: 20080715
  2. CLONIDINE [Concomitant]
  3. ZOLOFT [Concomitant]

REACTIONS (3)
  - OFF LABEL USE [None]
  - PRURITUS [None]
  - URTICARIA [None]
